FAERS Safety Report 24290976 (Version 1)
Quarter: 2024Q3

REPORT INFORMATION
  Report Type: Spontaneous
  Country: US (occurrence: US)
  Receive Date: 20240906
  Receipt Date: 20240906
  Transmission Date: 20241017
  Serious: Yes (Hospitalization, Other)
  Sender: BRISTOL MYERS SQUIBB
  Company Number: US-BRISTOL-MYERS SQUIBB COMPANY-2024-137826

PATIENT
  Age: 76 Year
  Sex: Male

DRUGS (2)
  1. LENALIDOMIDE [Suspect]
     Active Substance: LENALIDOMIDE
     Indication: Pulmonary embolism
     Dosage: TAKE 1 CAPSULE BY MOUTH WHOLE WITH WATER DAILY ON DAYS 1-21, THEN 7 DAYS OFF. REPEAT CYCLE
     Route: 048
  2. LENALIDOMIDE [Suspect]
     Active Substance: LENALIDOMIDE
     Indication: Cor pulmonale acute

REACTIONS (2)
  - Pneumonia [Recovering/Resolving]
  - Off label use [Unknown]
